FAERS Safety Report 10298981 (Version 2)
Quarter: 2015Q1

REPORT INFORMATION
  Report Type: Spontaneous
  Country: US (occurrence: US)
  Receive Date: 20140711
  Receipt Date: 20150316
  Transmission Date: 20150720
  Serious: Yes (Hospitalization, Congenital Anomaly, Other)
  Sender: FDA-Public Use
  Company Number: US-ELI_LILLY_AND_COMPANY-US201407002702

PATIENT
  Sex: Female

DRUGS (13)
  1. PROPOXYPHENE AND ACETAMINOPHEN [Concomitant]
     Active Substance: ACETAMINOPHEN\PROPOXYPHENE NAPSYLATE
     Dosage: 1 DF, PRN
     Route: 064
     Dates: start: 20030513
  2. OMEPRAZOLE. [Concomitant]
     Active Substance: OMEPRAZOLE
     Dosage: 20 MG, QD
     Route: 064
     Dates: start: 20030609
  3. FAMOTIDINE. [Concomitant]
     Active Substance: FAMOTIDINE
     Dosage: 20 MG, BID
     Route: 064
     Dates: start: 20030313
  4. MEPERIDINE W/PROMETHAZINE [Concomitant]
     Dosage: 1 DF, QID
     Route: 064
     Dates: start: 20030514
  5. HYDROCODONE/APAP [Concomitant]
     Active Substance: ACETAMINOPHEN\HYDROCODONE
     Dosage: 2 DF, OTHER
     Route: 064
  6. PROMETHAZINE [Concomitant]
     Active Substance: PROMETHAZINE\PROMETHAZINE HYDROCHLORIDE
     Indication: NAUSEA
     Dosage: 25 MG, TID
     Route: 064
     Dates: start: 20030213
  7. Q-BID DM [Concomitant]
     Dosage: 1 DF, BID
     Route: 064
     Dates: start: 20030213
  8. MACROBID [Concomitant]
     Active Substance: NITROFURANTOIN\NITROFURANTOIN MONOHYDRATE
     Dosage: 1 DF, BID
     Route: 064
     Dates: start: 20030516
  9. PROZAC [Suspect]
     Active Substance: FLUOXETINE HYDROCHLORIDE
     Indication: PRODUCT USED FOR UNKNOWN INDICATION
     Dosage: UNK UNK, UNKNOWN
     Route: 064
  10. SARAFEM [Suspect]
     Active Substance: FLUOXETINE HYDROCHLORIDE
     Indication: PRODUCT USED FOR UNKNOWN INDICATION
     Dosage: UNK, UNKNOWN
     Route: 064
  11. PROMETHAZINE [Concomitant]
     Active Substance: PROMETHAZINE\PROMETHAZINE HYDROCHLORIDE
     Indication: VOMITING
  12. DIFLUCAN [Concomitant]
     Active Substance: FLUCONAZOLE
     Dosage: 150 MG, SINGLE
     Route: 064
     Dates: start: 20030225
  13. AMOXICILLIN. [Concomitant]
     Active Substance: AMOXICILLIN
     Dosage: 500 MG, QID
     Route: 064
     Dates: start: 20030514

REACTIONS (5)
  - Meningomyelocele [Unknown]
  - Tethered cord syndrome [Unknown]
  - Spina bifida [Unknown]
  - Benign neoplasm of spinal cord [Unknown]
  - Foetal exposure during pregnancy [Recovered/Resolved]
